FAERS Safety Report 5761584-4 (Version None)
Quarter: 2008Q2

REPORT INFORMATION
  Report Type: 
  Country: None (occurrence: None)
  Receive Date: 20080606
  Receipt Date: 20080527
  Transmission Date: 20081010
  Serious: Yes (Hospitalization, Disabling, Other)
  Sender: FDA-Public Use
  Company Number: US-PFIZER INC-2006126761

PATIENT
  Sex: Female
  Weight: 87 kg

DRUGS (5)
  1. CELEBREX [Suspect]
     Indication: PAIN IN EXTREMITY
  2. CELEBREX [Suspect]
     Indication: NECK PAIN
  3. BEXTRA [Suspect]
     Indication: NECK PAIN
  4. BEXTRA [Suspect]
     Indication: PAIN IN EXTREMITY
  5. BEXTRA [Suspect]

REACTIONS (1)
  - CEREBROVASCULAR ACCIDENT [None]
